FAERS Safety Report 4601606-7 (Version None)
Quarter: 2005Q1

REPORT INFORMATION
  Report Type: 
  Country: None (occurrence: None)
  Receive Date: 20050308
  Receipt Date: 20050202
  Transmission Date: 20050727
  Serious: Yes (Other)
  Sender: FDA-Public Use
  Company Number: US-GLAXOSMITHKLINE-A0543494A

PATIENT
  Age: 43 Year
  Sex: Female

DRUGS (3)
  1. WELLBUTRIN XL [Suspect]
     Indication: DEPRESSION
     Dosage: 300MG PER DAY
     Route: 048
     Dates: start: 20050102, end: 20050124
  2. MACROBID [Concomitant]
  3. ZYRTEC [Concomitant]

REACTIONS (10)
  - ARTHRALGIA [None]
  - CONTUSION [None]
  - HYPERSENSITIVITY [None]
  - HYPOTENSION [None]
  - RASH GENERALISED [None]
  - RASH MACULAR [None]
  - SKIN DISCOLOURATION [None]
  - SWELLING [None]
  - URINARY TRACT INFECTION [None]
  - URTICARIA [None]
